FAERS Safety Report 19233137 (Version 1)
Quarter: 2021Q2

REPORT INFORMATION
  Report Type: Spontaneous
  Country: SE (occurrence: SE)
  Receive Date: 20210507
  Receipt Date: 20210507
  Transmission Date: 20210717
  Serious: Yes (Disabling)
  Sender: FDA-Public Use
  Company Number: NVSC2021SE094974

PATIENT
  Age: 28 Year
  Sex: Female
  Weight: 55 kg

DRUGS (13)
  1. ALVEDON [Concomitant]
     Active Substance: ACETAMINOPHEN
     Indication: PRODUCT USED FOR UNKNOWN INDICATION
     Dosage: UNK (500 MG VID BEHOV)
     Route: 048
  2. AMITRIPTYLIN [Concomitant]
     Active Substance: AMITRIPTYLINE
     Indication: PRODUCT USED FOR UNKNOWN INDICATION
     Dosage: 20 MG, QD (10 MG 2 TABLETTER TILL KV?LLEN. DAGLIGEN.)
     Route: 048
     Dates: start: 2019
  3. BRICANYL [Concomitant]
     Active Substance: TERBUTALINE SULFATE
     Indication: PRODUCT USED FOR UNKNOWN INDICATION
     Dosage: (0,5 MG/DOS EN DOS VID BEHOV.)
     Route: 055
     Dates: start: 1999
  4. VISCOTEARS [Concomitant]
     Active Substance: CARBOMER
     Indication: PRODUCT USED FOR UNKNOWN INDICATION
     Dosage: UNK (2 MG/G VID BEHOV. DAGLIGEN.)
     Route: 047
     Dates: start: 2008
  5. MOMMOX [Suspect]
     Active Substance: MOMETASONE FUROATE
     Dosage: UNK
     Route: 065
  6. FINACEA [Concomitant]
     Active Substance: AZELAIC ACID
     Indication: PRODUCT USED FOR UNKNOWN INDICATION
     Dosage: UNK (15 % DAGLIGEN.)
     Route: 003
  7. SINGULAIR [Concomitant]
     Active Substance: MONTELUKAST SODIUM
     Indication: PRODUCT USED FOR UNKNOWN INDICATION
     Dosage: 10 MG, QD (10 MG 1 TABLETT TILL KV?LLEN)
     Route: 048
     Dates: start: 2020
  8. MOMMOX [Suspect]
     Active Substance: MOMETASONE FUROATE
     Dosage: UNK
     Route: 065
  9. IMOVANE [Concomitant]
     Active Substance: ZOPICLONE
     Indication: PRODUCT USED FOR UNKNOWN INDICATION
     Dosage: 7.5 MG 1 TABLETT VID BEHOV.
     Route: 048
     Dates: start: 2012
  10. DALACIN [Concomitant]
     Active Substance: CLINDAMYCIN
     Indication: PRODUCT USED FOR UNKNOWN INDICATION
     Dosage: QD (10 MG/ML DAGLIGEN, KV?LL.)
     Route: 003
  11. MOMMOX [Suspect]
     Active Substance: MOMETASONE FUROATE
     Indication: PRODUCT USED FOR UNKNOWN INDICATION
     Dosage: QD (2 SPRAYING I VARJE N?SBORRE, MORGON OCH KV?LL. DAGLIGEN.)
     Route: 045
     Dates: start: 2016
  12. IBUMETIN [Concomitant]
     Active Substance: IBUPROFEN
     Indication: PRODUCT USED FOR UNKNOWN INDICATION
     Dosage: UNK (CA 3 GGR/DAGLIGEN)
     Route: 048
     Dates: start: 2018
  13. KESTINE [Concomitant]
     Active Substance: EBASTINE
     Indication: PRODUCT USED FOR UNKNOWN INDICATION
     Dosage: 20 MG,QD (10 MG 2 TABLETTER, MORGON. DAGLIGEN.)
     Route: 048
     Dates: start: 1999

REACTIONS (4)
  - Nasal congestion [Not Recovered/Not Resolved]
  - Oropharyngeal pain [Not Recovered/Not Resolved]
  - Epistaxis [Not Recovered/Not Resolved]
  - Nasal discomfort [Not Recovered/Not Resolved]

NARRATIVE: CASE EVENT DATE: 2017
